FAERS Safety Report 4294401-2 (Version None)
Quarter: 2004Q1

REPORT INFORMATION
  Report Type: 
  Country: None (occurrence: None)
  Receive Date: 20040211
  Receipt Date: 20040204
  Transmission Date: 20041129
  Serious: Yes (Life-Threatening, Other)
  Sender: FDA-Public Use
  Company Number: 2004197863GB

PATIENT
  Age: 58 Year
  Sex: Female
  Weight: 55 kg

DRUGS (3)
  1. CABERGOLINE [Suspect]
     Indication: PARKINSON'S DISEASE
     Dosage: 4 MG DAILY, ORAL
     Route: 048
     Dates: start: 20020115, end: 20031021
  2. SINEMET [Concomitant]
  3. DIAZEPAM [Concomitant]

REACTIONS (1)
  - TRICUSPID VALVE INCOMPETENCE [None]
